FAERS Safety Report 10287455 (Version 1)
Quarter: 2014Q3

REPORT INFORMATION
  Report Type: Spontaneous
  Country: US (occurrence: US)
  Receive Date: 20140709
  Receipt Date: 20140709
  Transmission Date: 20150326
  Serious: Yes (Hospitalization)
  Sender: FDA-Public Use
  Company Number: US-GLAXOSMITHKLINE-A1079988A

PATIENT
  Age: 82 Year
  Sex: Female

DRUGS (6)
  1. ADVAIR HFA [Suspect]
     Active Substance: FLUTICASONE PROPIONATE\SALMETEROL XINAFOATE
     Indication: ASTHMA
     Dosage: 1PUFF TWICE PER DAY
     Route: 055
     Dates: start: 2006
  2. OXYGEN. [Concomitant]
     Active Substance: OXYGEN
  3. CLOPIDOGREL [Concomitant]
     Active Substance: CLOPIDOGREL BISULFATE
  4. LISINOPRIL-HYDROCHLOROTHIAZIDE [Concomitant]
     Active Substance: HYDROCHLOROTHIAZIDE\LISINOPRIL
  5. METOPROLOL [Concomitant]
     Active Substance: METOPROLOL
  6. PRAVASTATIN [Concomitant]
     Active Substance: PRAVASTATIN\PRAVASTATIN SODIUM

REACTIONS (7)
  - Dysphonia [Not Recovered/Not Resolved]
  - Palpitations [Unknown]
  - Arrhythmia [Unknown]
  - Pleural effusion [Recovered/Resolved]
  - Internal carotid artery kinking [Unknown]
  - Myocardial infarction [Unknown]
  - Arterial therapeutic procedure [Unknown]

NARRATIVE: CASE EVENT DATE: 201312
